FAERS Safety Report 6990589-0 (Version None)
Quarter: 2010Q3

REPORT INFORMATION
  Report Type: 
  Country: None (occurrence: None)
  Receive Date: 20100916
  Receipt Date: 20100707
  Transmission Date: 20110219
  Serious: Yes (Other)
  Sender: FDA-Public Use
  Company Number: US-PFIZER INC-2010032525

PATIENT
  Sex: Female
  Weight: 68.027 kg

DRUGS (5)
  1. LYRICA [Suspect]
     Indication: FIBROMYALGIA
     Dosage: 75 MG, 1X/DAY
     Route: 048
     Dates: start: 20100101
  2. LYRICA [Suspect]
     Dosage: 75 MG, 2X/DAY
     Route: 048
     Dates: end: 20100201
  3. LYRICA [Suspect]
     Dosage: 100 MG, 2X/DAY
  4. LIPITOR [Concomitant]
     Dosage: UNK
  5. HYDROCHLOROTHIAZIDE [Concomitant]
     Dosage: UNK

REACTIONS (8)
  - DIZZINESS [None]
  - DRUG INTOLERANCE [None]
  - FIBROMYALGIA [None]
  - IMPAIRED GASTRIC EMPTYING [None]
  - IRRITABLE BOWEL SYNDROME [None]
  - NAUSEA [None]
  - PAIN IN EXTREMITY [None]
  - VISION BLURRED [None]
